FAERS Safety Report 11706682 (Version 1)
Quarter: 2015Q4

REPORT INFORMATION
  Report Type: Spontaneous
  Country: US (occurrence: US)
  Receive Date: 20151106
  Receipt Date: 20151106
  Transmission Date: 20160304
  Serious: Yes (Death)
  Sender: FDA-Public Use
  Company Number: US-FRESENIUS MEDICAL CARE NORTH AMERICA-1043882

PATIENT
  Age: 60 Year
  Sex: Female

DRUGS (1)
  1. SALINE ORAL OTC [Suspect]
     Active Substance: SODIUM CHLORIDE
     Indication: CHRONIC KIDNEY DISEASE
     Route: 010

REACTIONS (3)
  - Procedural hypotension [Fatal]
  - Cardiac arrest [Fatal]
  - Unresponsive to stimuli [Fatal]

NARRATIVE: CASE EVENT DATE: 20151022
